APPROVED DRUG PRODUCT: ERLOTINIB HYDROCHLORIDE
Active Ingredient: ERLOTINIB HYDROCHLORIDE
Strength: EQ 25MG BASE
Dosage Form/Route: TABLET;ORAL
Application: A209267 | Product #001 | TE Code: AB
Applicant: HETERO LABS LTD UNIT V
Approved: May 24, 2024 | RLD: No | RS: No | Type: RX